FAERS Safety Report 5494797-X (Version None)
Quarter: 2007Q4

REPORT INFORMATION
  Report Type: 
  Country: None (occurrence: None)
  Receive Date: 20071024
  Receipt Date: 20071015
  Transmission Date: 20080405
  Serious: Yes (Other)
  Sender: FDA-Public Use
  Company Number: US-AVENTIS-200717356US

PATIENT
  Sex: Male

DRUGS (2)
  1. LANTUS [Suspect]
  2. MEDICATION NOT SPECIFIED [Concomitant]
     Dosage: DOSE: UNK

REACTIONS (9)
  - ASTHENIA [None]
  - BLOOD GLUCOSE DECREASED [None]
  - DYSPNOEA [None]
  - DYSSTASIA [None]
  - INJECTION SITE IRRITATION [None]
  - MOBILITY DECREASED [None]
  - MUSCLE TIGHTNESS [None]
  - MYALGIA [None]
  - MYOCARDIAL INFARCTION [None]
